FAERS Safety Report 8791942 (Version 4)
Quarter: 2013Q2

REPORT INFORMATION
  Report Type: Spontaneous
  Country: GB (occurrence: GB)
  Receive Date: 20120918
  Receipt Date: 20130612
  Transmission Date: 20140414
  Serious: Yes (Hospitalization, Other)
  Sender: FDA-Public Use
  Company Number: GB-ABBOTT-12P-167-0979986-00

PATIENT
  Age: 34 Year
  Sex: Female

DRUGS (8)
  1. KALETRA [Suspect]
     Indication: ANTIVIRAL TREATMENT
     Route: 048
     Dates: start: 20100610
  2. KALETRA [Suspect]
     Indication: HIV INFECTION
  3. ISENTRESS [Suspect]
     Indication: HIV INFECTION
     Dosage: GESTATION PERIOD- 37 WEEKS
     Dates: start: 20100610
  4. NEVIRAPINE [Suspect]
     Indication: ANTIVIRAL TREATMENT
     Route: 048
     Dates: start: 20090101, end: 20100610
  5. ZIDOVUDINE [Suspect]
     Indication: ANTIVIRAL TREATMENT
     Dates: start: 20090101, end: 20100610
  6. LAMIVUDINE [Suspect]
     Indication: ANTIVIRAL TREATMENT
     Dates: start: 20090101, end: 20100610
  7. VIREAD [Suspect]
     Indication: ANTIVIRAL TREATMENT
     Dates: start: 20100610
  8. VIREAD [Suspect]
     Indication: HIV INFECTION

REACTIONS (4)
  - Hepatocellular injury [Unknown]
  - Caesarean section [Unknown]
  - Alanine aminotransferase increased [Unknown]
  - Aspartate aminotransferase increased [Unknown]
